FAERS Safety Report 5062646-X (Version None)
Quarter: 2006Q3

REPORT INFORMATION
  Report Type: 
  Country: None (occurrence: None)
  Receive Date: 20060724
  Receipt Date: 20060724
  Transmission Date: 20061208
  Serious: Yes (Life-Threatening, Hospitalization)
  Sender: FDA-Public Use
  Company Number: None

PATIENT
  Sex: Male

DRUGS (1)
  1. ENOXAPARIN SODIUM [Suspect]
     Indication: DEEP VEIN THROMBOSIS
     Dosage: 120 MG Q 12 H SQ
     Route: 058
     Dates: start: 20060619, end: 20060619

REACTIONS (1)
  - RETROPERITONEAL HAEMORRHAGE [None]
